FAERS Safety Report 8177961-0 (Version None)
Quarter: 2012Q1

REPORT INFORMATION
  Report Type: 
  Country: None (occurrence: None)
  Receive Date: 20120301
  Receipt Date: 20120221
  Transmission Date: 20120608
  Serious: Yes (Death, Other)
  Sender: FDA-Public Use
  Company Number: ES-PFIZER INC-2012049343

PATIENT
  Age: 73 Year
  Sex: Female

DRUGS (6)
  1. FENOFIBRATE [Interacting]
     Indication: PRODUCT USED FOR UNKNOWN INDICATION
     Dosage: 160 MG/24 HR.
  2. ROSUVASTATIN [Interacting]
     Indication: PRODUCT USED FOR UNKNOWN INDICATION
     Dosage: 20 MG/24 HR.
  3. CALCIUM/COLECALCIFEROL/RISEDRONATE SODIUM [Concomitant]
  4. AMIODARONE HCL [Suspect]
     Indication: PRODUCT USED FOR UNKNOWN INDICATION
     Dosage: 200 MG/24 HR.
  5. LEVOTHYROXINE SODIUM [Concomitant]
  6. ACENOCOUMAROL [Concomitant]

REACTIONS (3)
  - DRUG INTERACTION [None]
  - HEPATIC FAILURE [None]
  - RHABDOMYOLYSIS [None]
